FAERS Safety Report 9649682 (Version 4)
Quarter: 2014Q4

REPORT INFORMATION
  Report Type: Report from Study
  Country: CA (occurrence: CA)
  Receive Date: 20131028
  Receipt Date: 20141226
  Transmission Date: 20150529
  Serious: Yes (Hospitalization, Other)
  Sender: FDA-Public Use
  Company Number: CA-ROCHE-1295072

PATIENT
  Age: 70 Year
  Sex: Female
  Weight: 78.5 kg

DRUGS (24)
  1. ACTEMRA [Suspect]
     Active Substance: TOCILIZUMAB
     Indication: RHEUMATOID ARTHRITIS
     Route: 042
     Dates: start: 20130625
  2. ACTEMRA [Suspect]
     Active Substance: TOCILIZUMAB
     Route: 042
     Dates: start: 20140514
  3. ACTEMRA [Suspect]
     Active Substance: TOCILIZUMAB
     Route: 042
     Dates: start: 20140804
  4. DOCUSATE [Concomitant]
     Active Substance: DOCUSATE
  5. TRAZODONE [Concomitant]
     Active Substance: TRAZODONE HYDROCHLORIDE
  6. ACTEMRA [Suspect]
     Active Substance: TOCILIZUMAB
     Route: 042
     Dates: start: 20140120
  7. METHOTREXATE [Concomitant]
     Active Substance: METHOTREXATE
  8. ACTEMRA [Suspect]
     Active Substance: TOCILIZUMAB
     Route: 042
     Dates: start: 20131223
  9. ACTEMRA [Suspect]
     Active Substance: TOCILIZUMAB
     Route: 042
     Dates: start: 20140707
  10. PREDNISONE. [Concomitant]
     Active Substance: PREDNISONE
  11. PANTOLOC [Concomitant]
     Active Substance: PANTOPRAZOLE SODIUM
  12. ORPHENADRINE [Concomitant]
     Active Substance: ORPHENADRINE
  13. SENNOSIDES. [Concomitant]
     Active Substance: SENNOSIDES
  14. SYNTHROID [Concomitant]
     Active Substance: LEVOTHYROXINE SODIUM
  15. ACTEMRA [Suspect]
     Active Substance: TOCILIZUMAB
     Route: 042
     Dates: start: 20140217
  16. ACTEMRA [Suspect]
     Active Substance: TOCILIZUMAB
     Route: 042
     Dates: start: 20140414
  17. PREGABALIN. [Concomitant]
     Active Substance: PREGABALIN
  18. BETAHISTINE [Concomitant]
     Active Substance: BETAHISTINE
  19. PULMICORT TURBUHALER [Concomitant]
     Active Substance: BUDESONIDE
  20. ACTEMRA [Suspect]
     Active Substance: TOCILIZUMAB
     Route: 042
     Dates: start: 20140317
  21. ACTEMRA [Suspect]
     Active Substance: TOCILIZUMAB
     Route: 042
     Dates: start: 20140609
  22. LEUCOVORIN [Concomitant]
     Active Substance: LEUCOVORIN
  23. CITALOPRAM [Concomitant]
     Active Substance: CITALOPRAM HYDROBROMIDE
  24. LYRICA [Concomitant]
     Active Substance: PREGABALIN

REACTIONS (4)
  - Sinusitis [Recovered/Resolved]
  - Fall [Unknown]
  - Spinal fracture [Unknown]
  - Vulvovaginal dryness [Recovering/Resolving]

NARRATIVE: CASE EVENT DATE: 201310
